FAERS Safety Report 17125877 (Version 2)
Quarter: 2020Q1

REPORT INFORMATION
  Report Type: Report from Study
  Country: None (occurrence: US)
  Receive Date: 20191208
  Receipt Date: 20200305
  Transmission Date: 20200409
  Serious: Yes (Other)
  Sender: FDA-Public Use
  Company Number: US-ABBVIE-19K-163-3179914-00

PATIENT
  Sex: Female

DRUGS (2)
  1. HUMIRA [Suspect]
     Active Substance: ADALIMUMAB
     Indication: RHEUMATOID ARTHRITIS
  2. HUMIRA [Suspect]
     Active Substance: ADALIMUMAB
     Indication: UVEITIS
     Route: 058

REACTIONS (11)
  - Eye disorder [Unknown]
  - Breast swelling [Unknown]
  - Asthenia [Unknown]
  - Hypotension [Unknown]
  - Butterfly rash [Unknown]
  - Visual impairment [Unknown]
  - Cataract [Unknown]
  - Alopecia [Unknown]
  - Vomiting [Unknown]
  - Rash papular [Unknown]
  - Arthralgia [Unknown]
